FAERS Safety Report 17991988 (Version 3)
Quarter: 2020Q3

REPORT INFORMATION
  Report Type: Spontaneous
  Country: US (occurrence: US)
  Receive Date: 20200708
  Receipt Date: 20200811
  Transmission Date: 20201103
  Serious: No
  Sender: FDA-Public Use
  Company Number: US-ASTRAZENECA-2020SE85182

PATIENT
  Age: 908 Month
  Sex: Male

DRUGS (5)
  1. METFORMIN [Concomitant]
     Active Substance: METFORMIN HYDROCHLORIDE
     Indication: DIABETES MELLITUS
  2. VITAMINS [Concomitant]
     Active Substance: VITAMINS
  3. XANTAC [Concomitant]
  4. FAMOTIDINE PRN [Concomitant]
     Indication: GASTROOESOPHAGEAL REFLUX DISEASE
  5. BYDUREON [Suspect]
     Active Substance: EXENATIDE
     Route: 065
     Dates: start: 20200211

REACTIONS (9)
  - Decreased appetite [Unknown]
  - Injection site mass [Recovered/Resolved]
  - Hiccups [Unknown]
  - Weight decreased [Unknown]
  - Device issue [Unknown]
  - Incorrect dose administered by device [Unknown]
  - Injection site haemorrhage [Unknown]
  - Hyperhidrosis [Unknown]
  - Dyspepsia [Unknown]

NARRATIVE: CASE EVENT DATE: 202004
